FAERS Safety Report 9172565 (Version 1)
Quarter: 2012Q4

REPORT INFORMATION
  Report Type: 
  Country: IR (occurrence: IR)
  Receive Date: 20120911
  Receipt Date: 20120911
  Transmission Date: 20130627
  Serious: Yes (Death)
  Sender: FDA-Public Use
  Company Number: IR-ROCHE-1121529

PATIENT
  Age: 7 Year
  Sex: Male

DRUGS (10)
  1. ZENAPAX [Suspect]
     Indication: GRAFT VERSUS HOST DISEASE
     Route: 042
  2. CELLCEPT [Suspect]
     Indication: GRAFT VERSUS HOST DISEASE
  3. TACROLIMUS [Suspect]
     Indication: GRAFT VERSUS HOST DISEASE
  4. METHYLPREDNISOLONE [Concomitant]
     Indication: PROPHYLAXIS AGAINST GRAFT VERSUS HOST DISEASE
     Route: 042
  5. METHYLPREDNISOLONE [Concomitant]
     Route: 042
  6. CYCLOSPORINE [Concomitant]
     Indication: PROPHYLAXIS AGAINST GRAFT VERSUS HOST DISEASE
     Dosage: On day 1
     Route: 042
  7. CYCLOSPORINE [Concomitant]
     Dosage: From day 7
     Route: 042
  8. BUSULFAN [Concomitant]
     Indication: PROPHYLAXIS AGAINST GRAFT VERSUS HOST DISEASE
  9. ATGAM [Concomitant]
  10. PREDNISOLONE [Concomitant]
     Route: 048

REACTIONS (1)
  - Meningitis bacterial [Fatal]
